FAERS Safety Report 13502043 (Version 2)
Quarter: 2017Q2

REPORT INFORMATION
  Report Type: Spontaneous
  Country: CA (occurrence: CA)
  Receive Date: 20170502
  Receipt Date: 20170518
  Transmission Date: 20170830
  Serious: Yes (Other)
  Sender: FDA-Public Use
  Company Number: CA-ROCHE-1922688

PATIENT
  Sex: Male

DRUGS (15)
  1. PREDNISOLONE. [Suspect]
     Active Substance: PREDNISOLONE
     Indication: NON-HODGKIN^S LYMPHOMA
     Route: 065
  2. ASPIRIN. [Concomitant]
     Active Substance: ASPIRIN
     Route: 065
  3. IMDUR [Concomitant]
     Active Substance: ISOSORBIDE MONONITRATE
  4. RITUXAN [Suspect]
     Active Substance: RITUXIMAB
     Indication: NON-HODGKIN^S LYMPHOMA
     Route: 042
     Dates: start: 2012
  5. VINCRISTINE [Suspect]
     Active Substance: VINCRISTINE
     Indication: NON-HODGKIN^S LYMPHOMA
     Route: 065
  6. METHOTREXATE. [Concomitant]
     Active Substance: METHOTREXATE
  7. REPATHA [Concomitant]
     Active Substance: EVOLOCUMAB
  8. METFORMIN [Concomitant]
     Active Substance: METFORMIN HYDROCHLORIDE
  9. PREDNISONE. [Concomitant]
     Active Substance: PREDNISONE
  10. CYCLOPHOSPHAMIDE. [Suspect]
     Active Substance: CYCLOPHOSPHAMIDE
     Indication: NON-HODGKIN^S LYMPHOMA
     Route: 065
  11. REPATHA [Concomitant]
     Active Substance: EVOLOCUMAB
  12. JARDIANCE [Concomitant]
     Active Substance: EMPAGLIFLOZIN
  13. PLAVIX [Concomitant]
     Active Substance: CLOPIDOGREL BISULFATE
  14. CANDESARTAN. [Concomitant]
     Active Substance: CANDESARTAN
  15. BISOPROLOL [Concomitant]
     Active Substance: BISOPROLOL

REACTIONS (12)
  - Lymphadenopathy [Not Recovered/Not Resolved]
  - Cataract [Unknown]
  - Red cell distribution width increased [Unknown]
  - Fatigue [Not Recovered/Not Resolved]
  - Monocyte count increased [Unknown]
  - Weight decreased [Not Recovered/Not Resolved]
  - Albumin urine present [Unknown]
  - Arthritis [Not Recovered/Not Resolved]
  - Skin disorder [Unknown]
  - Blood glucose increased [Unknown]
  - Glycosylated haemoglobin increased [Unknown]
  - Pterygium [Not Recovered/Not Resolved]

NARRATIVE: CASE EVENT DATE: 2013
